FAERS Safety Report 23472013 (Version 4)
Quarter: 2024Q1

REPORT INFORMATION
  Report Type: Report from Study
  Country: US (occurrence: US)
  Receive Date: 20240202
  Receipt Date: 20240313
  Transmission Date: 20240409
  Serious: Yes (Other)
  Sender: FDA-Public Use
  Company Number: US-UCBSA-2024004520

PATIENT
  Sex: Female

DRUGS (3)
  1. CERTOLIZUMAB PEGOL [Suspect]
     Active Substance: CERTOLIZUMAB PEGOL
     Indication: Psoriatic arthropathy
     Dosage: 200 MILLIGRAM, EV 2 WEEKS(QOW)
  2. CERTOLIZUMAB PEGOL [Suspect]
     Active Substance: CERTOLIZUMAB PEGOL
     Dosage: STARTED IN OCTOBER OR NOVEMBER.
     Dates: start: 2023
  3. OTEZLA [Suspect]
     Active Substance: APREMILAST
     Indication: Product used for unknown indication
     Dosage: UNK

REACTIONS (13)
  - Suicidal ideation [Recovering/Resolving]
  - Depression [Recovering/Resolving]
  - Memory impairment [Unknown]
  - Arthralgia [Unknown]
  - Musculoskeletal discomfort [Unknown]
  - Symptom recurrence [Unknown]
  - Road traffic accident [Unknown]
  - Psoriasis [Unknown]
  - Emotional distress [Unknown]
  - Post-traumatic stress disorder [Unknown]
  - Myalgia [Unknown]
  - Insurance issue [Unknown]
  - Inappropriate schedule of product administration [Unknown]
